FAERS Safety Report 15738646 (Version 4)
Quarter: 2022Q1

REPORT INFORMATION
  Report Type: Spontaneous
  Country: FR (occurrence: FR)
  Receive Date: 20181219
  Receipt Date: 20220308
  Transmission Date: 20220423
  Serious: Yes (Death, Hospitalization, Other)
  Sender: FDA-Public Use
  Company Number: FR-AUROBINDO-AUR-APL-2018-060309

PATIENT
  Age: 65 Year
  Sex: Male
  Weight: 55.1 kg

DRUGS (15)
  1. LEVETIRACETAM [Suspect]
     Active Substance: LEVETIRACETAM
     Indication: Epilepsy
     Dosage: 14 MILLILITER, ONCE A DAY
     Route: 048
  2. RISPERDAL [Suspect]
     Active Substance: RISPERIDONE
     Indication: Psychotic disorder
     Dosage: 0.5 MILLIGRAM, ONCE A DAY
     Route: 048
     Dates: start: 20181106
  3. VALPROATE SODIUM [Suspect]
     Active Substance: VALPROATE SODIUM
     Indication: Epilepsy
     Dosage: 2500 MILLIGRAM, ONCE A DAY
     Route: 048
  4. ARANESP [Concomitant]
     Active Substance: DARBEPOETIN ALFA
     Indication: Anaemia
     Dosage: 40 MICROGRAM, EVERY WEEK
     Route: 058
  5. CALCIPARINE [Concomitant]
     Active Substance: HEPARIN CALCIUM
     Indication: Anticoagulant therapy
     Dosage: 0.4 MILLILITER, ONCE A DAY
     Route: 058
     Dates: start: 20181008, end: 20181118
  6. PREDNISONE [Concomitant]
     Active Substance: PREDNISONE
     Indication: Nephrotic syndrome
     Dosage: 5 MILLIGRAM, ONCE A DAY
     Route: 048
  7. DOLIPRANE [Concomitant]
     Active Substance: ACETAMINOPHEN
     Indication: Analgesic intervention supportive therapy
     Dosage: 3 GRAM, ONCE A DAY
     Route: 048
  8. IMOVANE [Concomitant]
     Active Substance: ZOPICLONE
     Indication: Insomnia
     Dosage: 7.5 MILLIGRAM, ONCE A DAY
     Route: 048
     Dates: start: 20181015
  9. LAMIVUDINE [Concomitant]
     Active Substance: LAMIVUDINE
     Indication: HIV infection
     Dosage: 150 MILLIGRAM, TWO TIMES A DAY
     Route: 048
  10. PENTACARINAT [Concomitant]
     Active Substance: PENTAMIDINE ISETHIONATE
     Indication: Antifungal prophylaxis
     Dosage: (1) UNK, ONCE A DAY
     Route: 055
     Dates: start: 20181001
  11. PREZISTA [Concomitant]
     Active Substance: DARUNAVIR ETHANOLATE
     Indication: HIV infection
     Dosage: 800 MILLIGRAM, ONCE A DAY
     Route: 048
  12. RAMIPRIL [Concomitant]
     Active Substance: RAMIPRIL
     Indication: Hypertension
     Dosage: 10 MILLIGRAM, ONCE A DAY
     Route: 048
  13. RITONAVIR [Concomitant]
     Active Substance: RITONAVIR
     Indication: HIV infection
     Dosage: 100 MILLIGRAM, ONCE A DAY
     Route: 048
  14. SODIUM CHLORIDE [Concomitant]
     Active Substance: SODIUM CHLORIDE
     Indication: Fluid replacement
     Dosage: 1000 MILLILITER, ONCE A DAY
     Route: 058
     Dates: start: 20181031
  15. ZIAGEN [Concomitant]
     Active Substance: ABACAVIR SULFATE
     Indication: HIV infection
     Dosage: 600 MILLIGRAM, ONCE A DAY
     Route: 048

REACTIONS (2)
  - Multiple organ dysfunction syndrome [Fatal]
  - Hypothermia [Recovered/Resolved]

NARRATIVE: CASE EVENT DATE: 20181107
